FAERS Safety Report 17165888 (Version 2)
Quarter: 2020Q3

REPORT INFORMATION
  Report Type: Spontaneous
  Country: CA (occurrence: CA)
  Receive Date: 20191217
  Receipt Date: 20200921
  Transmission Date: 20201102
  Serious: Yes (Other)
  Sender: FDA-Public Use
  Company Number: CA-MYLANLABS-2019M1122812

PATIENT
  Sex: Female
  Weight: 58 kg

DRUGS (5)
  1. LUMIGAN [Concomitant]
     Active Substance: BIMATOPROST
     Dosage: UNK
     Route: 065
  2. MELATONIN [Concomitant]
     Active Substance: MELATONIN
     Dosage: UNK
     Route: 065
     Dates: start: 201810
  3. ASPIRIN                            /00002701/ [Concomitant]
     Active Substance: ASPIRIN
     Dosage: UNK
     Route: 065
  4. AMLODIPINE [Concomitant]
     Active Substance: AMLODIPINE BESYLATE
     Dosage: UNK
     Route: 065
  5. SYNTHROID [Suspect]
     Active Substance: LEVOTHYROXINE SODIUM
     Indication: AUTOIMMUNE THYROIDITIS
     Dosage: EVERY MORNING
     Route: 048

REACTIONS (8)
  - Colitis microscopic [Not Recovered/Not Resolved]
  - Weight decreased [Recovered/Resolved]
  - Feeling abnormal [Not Recovered/Not Resolved]
  - Chronic gastritis [Not Recovered/Not Resolved]
  - Abdominal distension [Not Recovered/Not Resolved]
  - Off label use [Not Recovered/Not Resolved]
  - Eructation [Not Recovered/Not Resolved]
  - Flatulence [Not Recovered/Not Resolved]
